FAERS Safety Report 16400673 (Version 2)
Quarter: 2019Q2

REPORT INFORMATION
  Report Type: Spontaneous
  Country: DK (occurrence: DK)
  Receive Date: 20190606
  Receipt Date: 20190614
  Transmission Date: 20190711
  Serious: Yes (Other)
  Sender: FDA-Public Use
  Company Number: DK-BAUSCH-BL-2019-016316

PATIENT
  Age: 68 Year
  Sex: Male

DRUGS (2)
  1. METHOTREXATE SODIUM. [Suspect]
     Active Substance: METHOTREXATE SODIUM
     Indication: SARCOIDOSIS
     Route: 065
  2. PREDNISOLONE. [Suspect]
     Active Substance: PREDNISOLONE
     Indication: SARCOIDOSIS
     Route: 065

REACTIONS (1)
  - Therapy non-responder [Unknown]
